FAERS Safety Report 8907528 (Version 1)
Quarter: 2012Q4

REPORT INFORMATION
  Report Type: 
  Country: US (occurrence: US)
  Receive Date: 20121114
  Receipt Date: 20121114
  Transmission Date: 20130627
  Serious: Yes (Hospitalization, Other)
  Sender: FDA-Public Use
  Company Number: US-BIOGENIDEC-2012BI051010

PATIENT
  Sex: Female

DRUGS (1)
  1. AVONEX [Suspect]
     Indication: RELAPSING-REMITTING MULTIPLE SCLEROSIS
     Route: 030
     Dates: start: 20120516

REACTIONS (10)
  - Loss of control of legs [Unknown]
  - Abasia [Unknown]
  - Dysstasia [Unknown]
  - Cerebral haemorrhage [Unknown]
  - Fall [Recovered/Resolved]
  - Loss of consciousness [Unknown]
  - Rib fracture [Unknown]
  - Neoplasm malignant [Not Recovered/Not Resolved]
  - Multiple sclerosis [Not Recovered/Not Resolved]
  - Migraine [Not Recovered/Not Resolved]
